FAERS Safety Report 15265940 (Version 2)
Quarter: 2018Q4

REPORT INFORMATION
  Report Type: Spontaneous
  Country: US (occurrence: US)
  Receive Date: 20180810
  Receipt Date: 20181011
  Transmission Date: 20190204
  Serious: No
  Sender: FDA-Public Use
  Company Number: US-GLAXOSMITHKLINE-US2018142003

PATIENT
  Age: 71 Year
  Sex: Female
  Weight: 71.1 kg

DRUGS (1)
  1. VENTOLIN HFA [Suspect]
     Active Substance: ALBUTEROL SULFATE
     Indication: ASTHMA
     Dosage: UNK UNK, U
     Route: 055

REACTIONS (3)
  - Dyspnoea [Recovered/Resolved]
  - Wrong technique in product usage process [Unknown]
  - Product storage error [Unknown]

NARRATIVE: CASE EVENT DATE: 20180805
